FAERS Safety Report 7549229-4 (Version None)
Quarter: 2011Q2

REPORT INFORMATION
  Report Type: 
  Country: None (occurrence: None)
  Receive Date: 20110615
  Receipt Date: 20110601
  Transmission Date: 20111010
  Serious: Yes (Other)
  Sender: FDA-Public Use
  Company Number: PHHY2010JP39894

PATIENT
  Sex: Female

DRUGS (5)
  1. SIMULECT [Suspect]
     Indication: RENAL TRANSPLANT
     Dosage: 20 MG, UNK
     Route: 042
     Dates: start: 20091104, end: 20091104
  2. SIMULECT [Suspect]
     Dosage: 20 MG, UNK
     Route: 042
     Dates: start: 20091108, end: 20091108
  3. TACROLIMUS [Suspect]
     Indication: RENAL TRANSPLANT
     Dosage: 14 MG, UNK
     Route: 048
     Dates: start: 20091102
  4. PREDNISOLONE [Suspect]
     Indication: RENAL TRANSPLANT
     Dosage: 30 MG, UNK
     Route: 048
     Dates: start: 20091102
  5. CELLCEPT [Suspect]
     Indication: RENAL TRANSPLANT
     Dosage: 500 MG, UNK
     Route: 048
     Dates: start: 20091031

REACTIONS (2)
  - URETERIC STENOSIS [None]
  - HYDRONEPHROSIS [None]
